FAERS Safety Report 4405569-9 (Version None)
Quarter: 2004Q3

REPORT INFORMATION
  Report Type: 
  Country: None (occurrence: None)
  Receive Date: 20040723
  Receipt Date: 20031001
  Transmission Date: 20050211
  Serious: No
  Sender: FDA-Public Use
  Company Number: US-GLAXOSMITHKLINE-A0428256A

PATIENT
  Age: 71 Year
  Sex: Female

DRUGS (4)
  1. AVANDIA [Suspect]
     Dosage: 4MG PER DAY
     Route: 048
  2. AVAPRO [Concomitant]
  3. REGULAR INSULIN [Concomitant]
  4. NPH INSULIN [Concomitant]

REACTIONS (1)
  - WEIGHT INCREASED [None]
